FAERS Safety Report 4448204-6 (Version None)
Quarter: 2004Q3

REPORT INFORMATION
  Report Type: 
  Country: None (occurrence: None)
  Receive Date: 20040913
  Receipt Date: 20040901
  Transmission Date: 20050211
  Serious: Yes (Hospitalization)
  Sender: FDA-Public Use
  Company Number: FR-GLAXOSMITHKLINE-B0343969A

PATIENT
  Age: 85 Year
  Sex: Female

DRUGS (3)
  1. DEROXAT [Suspect]
     Dosage: 20MG PER DAY
     Route: 048
     Dates: end: 20040412
  2. IMOVANE [Suspect]
     Indication: SEDATION
     Dosage: 11.25MG PER DAY
     Route: 048
     Dates: end: 20040412
  3. REMINYL [Concomitant]
     Dosage: 8MG TWICE PER DAY
     Route: 048
     Dates: start: 20030801

REACTIONS (3)
  - FALL [None]
  - ORTHOSTATIC HYPOTENSION [None]
  - PSYCHOMOTOR RETARDATION [None]
